FAERS Safety Report 9298252 (Version 2)
Quarter: 2013Q2

REPORT INFORMATION
  Report Type: Spontaneous
  Country: FR (occurrence: FR)
  Receive Date: 20130520
  Receipt Date: 20130530
  Transmission Date: 20140414
  Serious: Yes (Hospitalization, Other)
  Sender: FDA-Public Use
  Company Number: FR-TEVA-405940ISR

PATIENT
  Age: 72 Year
  Sex: Female
  Weight: 55 kg

DRUGS (2)
  1. AZILECT [Suspect]
     Indication: PARKINSON^S DISEASE
     Dosage: 1 MILLIGRAM DAILY;
     Route: 048
     Dates: start: 201006
  2. MODOPAR [Suspect]
     Indication: PARKINSON^S DISEASE
     Dosage: 125 X 3, BENSERAZIDE 50 MG AND LEVODOPA 12.5 MG
     Route: 048
     Dates: start: 2010

REACTIONS (2)
  - Transitional cell carcinoma [Recovered/Resolved]
  - Polyp [Recovered/Resolved]
